FAERS Safety Report 6496476-9 (Version None)
Quarter: 2009Q4

REPORT INFORMATION
  Report Type: 
  Country: None (occurrence: None)
  Receive Date: 20091214
  Receipt Date: 20091208
  Transmission Date: 20100525
  Serious: Yes (Death, Hospitalization)
  Sender: FDA-Public Use
  Company Number: BR-BAYER-200924859LA

PATIENT
  Age: 78 Year
  Sex: Male

DRUGS (3)
  1. CIPRO [Suspect]
     Indication: URINARY TRACT INFECTION
     Route: 048
     Dates: start: 20090801
  2. CIPRO [Suspect]
     Route: 048
     Dates: start: 20090101
  3. CIPRO [Suspect]
     Route: 048
     Dates: start: 20090101

REACTIONS (4)
  - INFECTION [None]
  - URINARY TRACT INFECTION [None]
  - VOMITING [None]
  - WHITE BLOOD CELL COUNT INCREASED [None]
